FAERS Safety Report 5089566-9 (Version None)
Quarter: 2006Q3

REPORT INFORMATION
  Report Type: 
  Country: None (occurrence: None)
  Receive Date: 20060822
  Receipt Date: 20060801
  Transmission Date: 20061208
  Serious: Yes (Other)
  Sender: FDA-Public Use
  Company Number: US_0508121315

PATIENT
  Sex: Female
  Weight: 127 kg

DRUGS (8)
  1. OLANZAPINE [Suspect]
     Indication: DEPRESSION
     Dosage: ORAL
     Route: 048
     Dates: start: 20000315, end: 20040101
  2. SEROQUEL [Concomitant]
  3. RISPERIDONE [Concomitant]
  4. DEPAKOTE [Concomitant]
  5. WELLBUTRIN [Concomitant]
  6. PROZAC [Concomitant]
  7. INDERAL [Concomitant]
  8. DIURIL (CHLOROTHIAZIDE) [Concomitant]

REACTIONS (5)
  - DIABETES MELLITUS NON-INSULIN-DEPENDENT [None]
  - HEPATITIS VIRAL [None]
  - HYPERTENSION [None]
  - METABOLIC DISORDER [None]
  - WEIGHT INCREASED [None]
